FAERS Safety Report 10500947 (Version 1)
Quarter: 2014Q4

REPORT INFORMATION
  Report Type: Spontaneous
  Country: DE (occurrence: DE)
  Receive Date: 20141007
  Receipt Date: 20141007
  Transmission Date: 20150528
  Serious: Yes (Life-Threatening, Hospitalization)
  Sender: FDA-Public Use
  Company Number: DE-ACCORD-026246

PATIENT
  Age: 21 Year
  Sex: Female

DRUGS (7)
  1. TORASEMIDE [Suspect]
     Active Substance: TORSEMIDE
     Dosage: 50 TABLETS OF 10 MG TORSEMIDE
  2. AMITRIPTYLINE [Suspect]
     Active Substance: AMITRIPTYLINE
     Dosage: 60 TABLETS OF 100 MG AMITRIPTYLINE
  3. GABAPENTIN. [Suspect]
     Active Substance: GABAPENTIN
     Dosage: 40 TABLETS OF 400 MG GABAPENTIN
  4. AMLODIPINE [Suspect]
     Active Substance: AMLODIPINE BESYLATE
     Dosage: 60 TABLETS OF 5 MG AMLODIPINE (300 MG)
  5. CARVEDILOL. [Suspect]
     Active Substance: CARVEDILOL
     Dosage: 70 TABLETS OF 25-MG CARVEDILOL
  6. KETOPROFEN/KETOPROFEN ARGINATE/KETOPROFEN LYSINE/KETOPROFEN SODIUM [Suspect]
     Active Substance: KETOPROFEN
     Dosage: 30 TABLETS OF 50-MG KETOPROFEN
  7. NICOTINIC ACID [Suspect]
     Active Substance: NIACIN
     Dosage: 56 TABLETS OF 500 MG

REACTIONS (16)
  - Pulse absent [None]
  - Cardiac failure [None]
  - White blood cell count increased [None]
  - Suicide attempt [Unknown]
  - Toxicity to various agents [None]
  - Loss of consciousness [None]
  - Gamma-glutamyltransferase increased [None]
  - Intentional overdose [Unknown]
  - Aspartate aminotransferase increased [None]
  - Cardiac arrest [Recovered/Resolved]
  - Blood potassium increased [None]
  - Sinoatrial block [None]
  - Blood creatine phosphokinase increased [None]
  - Blood lactic acid increased [None]
  - Bradycardia [None]
  - Blood glucose increased [None]
